FAERS Safety Report 5756773-9 (Version None)
Quarter: 2008Q2

REPORT INFORMATION
  Report Type: 
  Country: None (occurrence: None)
  Receive Date: 20080529
  Receipt Date: 20080513
  Transmission Date: 20081010
  Serious: Yes (Hospitalization)
  Sender: FDA-Public Use
  Company Number: 2008AL004847

PATIENT
  Sex: Male

DRUGS (2)
  1. DIGOXIN [Suspect]
     Indication: DRUG USE FOR UNKNOWN INDICATION
     Dates: start: 20030101, end: 20060101
  2. CARACE [Concomitant]

REACTIONS (3)
  - HEART RATE DECREASED [None]
  - PULSE PRESSURE DECREASED [None]
  - THERAPEUTIC AGENT TOXICITY [None]
